FAERS Safety Report 10917362 (Version 3)
Quarter: 2015Q2

REPORT INFORMATION
  Report Type: Spontaneous
  Country: US (occurrence: US)
  Receive Date: 20150316
  Receipt Date: 20150505
  Transmission Date: 20150821
  Serious: No
  Sender: FDA-Public Use
  Company Number: US-PFIZER INC-2015092608

PATIENT
  Age: 69 Year
  Sex: Female

DRUGS (2)
  1. SOMAVERT [Suspect]
     Active Substance: PEGVISOMANT
     Indication: GIGANTISM
  2. SOMAVERT [Suspect]
     Active Substance: PEGVISOMANT
     Indication: ACROMEGALY
     Dosage: 30 MG, DAILY
     Route: 058
     Dates: start: 20050405, end: 20150327

REACTIONS (9)
  - Pollakiuria [Unknown]
  - Headache [Unknown]
  - Dizziness [Unknown]
  - Peripheral swelling [Unknown]
  - Vision blurred [Unknown]
  - Arthralgia [Unknown]
  - Dry mouth [Unknown]
  - Dyspnoea [Unknown]
  - Asthenia [Unknown]
